FAERS Safety Report 6909348-X (Version None)
Quarter: 2010Q3

REPORT INFORMATION
  Report Type: 
  Country: None (occurrence: None)
  Receive Date: 20100805
  Receipt Date: 20100730
  Transmission Date: 20110219
  Serious: Yes (Other)
  Sender: FDA-Public Use
  Company Number: PHHY2010BR21697

PATIENT
  Age: 8 Year
  Sex: Female
  Weight: 17 kg

DRUGS (2)
  1. RITALIN LA [Suspect]
     Indication: PSYCHOMOTOR HYPERACTIVITY
     Dosage: 20 MG, UNK
     Route: 048
     Dates: end: 20091201
  2. RITALIN LA [Suspect]
     Dosage: 20 MG, UNK
     Route: 048
     Dates: start: 20100331

REACTIONS (6)
  - ABNORMAL BEHAVIOUR [None]
  - DECREASED APPETITE [None]
  - DISTURBANCE IN ATTENTION [None]
  - HYPERPHAGIA [None]
  - INSOMNIA [None]
  - WEIGHT INCREASED [None]
